FAERS Safety Report 21299291 (Version 3)
Quarter: 2022Q3

REPORT INFORMATION
  Report Type: Report from Study
  Country: AU (occurrence: None)
  Receive Date: 20220906
  Receipt Date: 20220923
  Transmission Date: 20221027
  Serious: Yes (Other)
  Sender: FDA-Public Use
  Company Number: AU-ROCHE-3101473

PATIENT
  Age: 64 Year
  Sex: Female
  Weight: 70.5 kg

DRUGS (24)
  1. FARICIMAB [Suspect]
     Active Substance: FARICIMAB
     Indication: Macular oedema
     Route: 050
     Dates: start: 20211222
  2. FARICIMAB [Suspect]
     Active Substance: FARICIMAB
     Indication: Macular oedema
     Dosage: START DATE OF MOST RECENT DOSE OF STUDY DRUG PRIOR TO AE 16-FEB-2022 12:49 PM
     Route: 050
     Dates: start: 20211222
  3. PRISTIQ EXTENDED-RELEASE [Concomitant]
     Active Substance: DESVENLAFAXINE SUCCINATE
     Indication: Depression
     Route: 048
     Dates: start: 2015
  4. SIMBRINZA [Concomitant]
     Active Substance: BRIMONIDINE TARTRATE\BRINZOLAMIDE
     Indication: Uveitis
     Route: 047
     Dates: start: 20220316, end: 20220516
  5. SIMBRINZA [Concomitant]
     Active Substance: BRIMONIDINE TARTRATE\BRINZOLAMIDE
     Route: 047
     Dates: start: 20220601, end: 20220625
  6. SIMBRINZA [Concomitant]
     Active Substance: BRIMONIDINE TARTRATE\BRINZOLAMIDE
     Route: 047
     Dates: start: 20220706, end: 20220812
  7. PREDNISOLONE [Concomitant]
     Active Substance: PREDNISOLONE
     Indication: Uveitis
     Route: 048
     Dates: start: 20220413, end: 20220513
  8. NEXIUM [Concomitant]
     Active Substance: ESOMEPRAZOLE MAGNESIUM
     Indication: Uveitis
     Route: 048
     Dates: start: 20220413
  9. LATANOPROST\TIMOLOL MALEATE [Concomitant]
     Active Substance: LATANOPROST\TIMOLOL MALEATE
     Indication: Intraocular pressure increased
     Route: 047
     Dates: start: 20220317, end: 20220517
  10. PHENYLEPHRINE HYDROCHLORIDE\PREDNISOLONE ACETATE [Concomitant]
     Active Substance: PHENYLEPHRINE HYDROCHLORIDE\PREDNISOLONE ACETATE
     Indication: Uveitis
     Route: 047
     Dates: start: 20220601, end: 20220629
  11. PHENYLEPHRINE HYDROCHLORIDE\PREDNISOLONE ACETATE [Concomitant]
     Active Substance: PHENYLEPHRINE HYDROCHLORIDE\PREDNISOLONE ACETATE
     Route: 047
     Dates: start: 20220719
  12. PANADOL [Concomitant]
     Active Substance: ACETAMINOPHEN
     Indication: Vertigo
     Route: 048
     Dates: start: 20220506
  13. DEXAMETHASONE [Concomitant]
     Active Substance: DEXAMETHASONE
     Indication: Macular oedema
     Route: 050
     Dates: start: 20220608, end: 20220608
  14. TIMOLOL [Concomitant]
     Active Substance: TIMOLOL
     Indication: Uveitis
     Route: 047
     Dates: start: 20220315, end: 20220317
  15. DEXAMETHASONE [Concomitant]
     Active Substance: DEXAMETHASONE
     Indication: Uveitis
     Dosage: EYE DROPS
     Route: 047
     Dates: start: 20220315, end: 20220323
  16. CHLORAMPHENICOL [Concomitant]
     Active Substance: CHLORAMPHENICOL
     Indication: Uveitis
     Route: 047
     Dates: start: 20220316, end: 20220408
  17. VANCOMYCIN [Concomitant]
     Active Substance: VANCOMYCIN
     Indication: Uveitis
     Route: 050
     Dates: start: 20220406, end: 20220406
  18. VANCOMYCIN [Concomitant]
     Active Substance: VANCOMYCIN
     Indication: Prophylaxis
     Route: 050
     Dates: start: 20220409, end: 20220409
  19. VALACYCLOVIR HYDROCHLORIDE [Concomitant]
     Active Substance: VALACYCLOVIR HYDROCHLORIDE
     Indication: Uveitis
     Route: 048
     Dates: start: 20220316, end: 20220323
  20. CEFTAZIDIME [Concomitant]
     Active Substance: CEFTAZIDIME
     Indication: Uveitis
     Route: 050
     Dates: start: 20220406, end: 20220406
  21. CEFTAZIDIME [Concomitant]
     Active Substance: CEFTAZIDIME
     Route: 050
     Dates: start: 20220409, end: 20220409
  22. RANIBIZUMAB [Concomitant]
     Active Substance: RANIBIZUMAB
     Indication: Macular oedema
     Route: 050
     Dates: start: 20220420, end: 20220420
  23. ACETAMINOPHEN [Concomitant]
     Active Substance: ACETAMINOPHEN
     Indication: Pneumonia viral
     Route: 048
     Dates: start: 20220908, end: 20220909
  24. AMOXICILLIN\CLAVULANATE POTASSIUM [Concomitant]
     Active Substance: AMOXICILLIN\CLAVULANATE POTASSIUM
     Indication: Pneumonia viral
     Route: 048
     Dates: start: 20220908, end: 20220913

REACTIONS (1)
  - Cystoid macular oedema [Recovering/Resolving]

NARRATIVE: CASE EVENT DATE: 20220406
